FAERS Safety Report 7211548-9 (Version None)
Quarter: 2011Q1

REPORT INFORMATION
  Report Type: 
  Country: None (occurrence: None)
  Receive Date: 20110105
  Receipt Date: 20101227
  Transmission Date: 20110831
  Serious: Yes (Hospitalization)
  Sender: FDA-Public Use
  Company Number: JP-ASTRAZENECA-2010SE44440

PATIENT
  Age: 722 Month
  Sex: Female
  Weight: 72 kg

DRUGS (10)
  1. PROMETHAZINE [Concomitant]
     Indication: SCHIZOPHRENIA
  2. LITHIUM CARBONATE [Concomitant]
     Indication: SCHIZOPHRENIA
  3. RISPERIDONE [Concomitant]
     Indication: SCHIZOPHRENIA
  4. OLANZAPINE [Concomitant]
     Indication: SCHIZOPHRENIA
  5. SEROQUEL [Suspect]
     Route: 048
  6. SELENICA-R [Concomitant]
     Indication: SCHIZOPHRENIA
  7. SEROQUEL [Suspect]
     Indication: DELUSION
     Route: 048
     Dates: start: 20100627, end: 20100901
  8. SEROQUEL [Suspect]
     Route: 048
  9. SELENICA-R [Concomitant]
     Indication: AGITATION
  10. SEROQUEL [Suspect]
     Indication: SCHIZOPHRENIA
     Route: 048
     Dates: start: 20100627, end: 20100901

REACTIONS (2)
  - EXTRAPYRAMIDAL DISORDER [None]
  - DISUSE SYNDROME [None]
